FAERS Safety Report 21798367 (Version 2)
Quarter: 2023Q1

REPORT INFORMATION
  Report Type: Spontaneous
  Country: US (occurrence: US)
  Receive Date: 20221230
  Receipt Date: 20230114
  Transmission Date: 20230417
  Serious: No
  Sender: FDA-Public Use
  Company Number: US-002147023-NVSC2022US300828

PATIENT
  Sex: Female

DRUGS (1)
  1. XIIDRA [Suspect]
     Active Substance: LIFITEGRAST
     Indication: Dry eye
     Dosage: UNK, Q12H
     Route: 065

REACTIONS (6)
  - Pharyngeal ulceration [Unknown]
  - Dysphagia [Unknown]
  - Lacrimation increased [Unknown]
  - Dizziness [Unknown]
  - Alopecia [Unknown]
  - Vision blurred [Unknown]
